FAERS Safety Report 4748354-0 (Version None)
Quarter: 2005Q3

REPORT INFORMATION
  Report Type: 
  Country: None (occurrence: None)
  Receive Date: 20050818
  Receipt Date: 20050325
  Transmission Date: 20060218
  Serious: Yes (Hospitalization, Disabling)
  Sender: FDA-Public Use
  Company Number: US-MERCK-0503USA05004

PATIENT
  Age: 48 Year
  Sex: Male
  Weight: 82 kg

DRUGS (7)
  1. VIOXX [Suspect]
     Indication: SHOULDER PAIN
     Route: 048
     Dates: start: 20010501, end: 20030318
  2. VIOXX [Suspect]
     Route: 048
     Dates: start: 20010501, end: 20030318
  3. FIORINAL [Concomitant]
     Indication: HEADACHE
     Route: 065
     Dates: start: 19920401
  4. DARVOCET-N 100 [Concomitant]
     Route: 065
  5. AMOXICILLIN [Concomitant]
     Route: 065
  6. TYLENOL [Concomitant]
     Route: 065
  7. FLEXERIL [Concomitant]
     Route: 065

REACTIONS (8)
  - CAROTID ARTERY DISSECTION [None]
  - CEREBROVASCULAR ACCIDENT [None]
  - DEPRESSION [None]
  - FALL [None]
  - HAEMATEMESIS [None]
  - HEADACHE [None]
  - HYPERTENSION [None]
  - OTITIS MEDIA [None]
